FAERS Safety Report 6565674-8 (Version None)
Quarter: 2010Q1

REPORT INFORMATION
  Report Type: 
  Country: None (occurrence: None)
  Receive Date: 20100201
  Receipt Date: 20100118
  Transmission Date: 20100710
  Serious: Yes (Hospitalization)
  Sender: FDA-Public Use
  Company Number: US-ROCHE-674119

PATIENT
  Sex: Female

DRUGS (2)
  1. PEG-INTERFERON A-2A (RO 25-8310) [Suspect]
     Indication: HEPATITIS C
     Dosage: FORMULATION: PRE-FILLED SYRINGE
     Route: 065
     Dates: start: 20090417
  2. RIBAVIRIN [Suspect]
     Indication: HEPATITIS C
     Dosage: TAKEN IN DIVIDED DOSES
     Route: 065
     Dates: start: 20090417

REACTIONS (4)
  - ARTHROPOD BITE [None]
  - FATIGUE [None]
  - HAEMATOCRIT DECREASED [None]
  - LOCAL SWELLING [None]
